FAERS Safety Report 12743224 (Version 3)
Quarter: 2016Q4

REPORT INFORMATION
  Report Type: Spontaneous
  Country: US (occurrence: US)
  Receive Date: 20160914
  Receipt Date: 20161117
  Transmission Date: 20170207
  Serious: Yes (Hospitalization)
  Sender: FDA-Public Use
  Company Number: US-VERTEX PHARMACEUTICALS-2016-005312

PATIENT
  Age: 16 Year
  Sex: Female

DRUGS (12)
  1. ORKAMBI [Suspect]
     Active Substance: IVACAFTOR\LUMACAFTOR
     Indication: CYSTIC FIBROSIS
     Dosage: 2 DF, BID
     Route: 048
     Dates: start: 20150824
  2. VITAMIN C [Concomitant]
     Active Substance: ASCORBIC ACID
  3. PROBIOTIC [Concomitant]
     Active Substance: PROBIOTICS NOS
  4. SODIUM CHLORIDE. [Concomitant]
     Active Substance: SODIUM CHLORIDE
  5. MULTIVITAMIN [Concomitant]
     Active Substance: VITAMINS
  6. ALBUTEROL. [Concomitant]
     Active Substance: ALBUTEROL
  7. APIDEX [Concomitant]
     Active Substance: PHENTERMINE
  8. DUONEB [Concomitant]
     Active Substance: ALBUTEROL SULFATE\IPRATROPIUM BROMIDE
  9. VITAMIN D3 [Concomitant]
     Active Substance: CHOLECALCIFEROL
  10. PULMOZYME [Concomitant]
     Active Substance: DORNASE ALFA
  11. ZENPEP [Concomitant]
     Active Substance: PANCRELIPASE AMYLASE\PANCRELIPASE LIPASE\PANCRELIPASE PROTEASE
  12. AZITHROMYCIN ANHYDROUS. [Concomitant]
     Active Substance: AZITHROMYCIN ANHYDROUS

REACTIONS (1)
  - Infective pulmonary exacerbation of cystic fibrosis [Recovered/Resolved]

NARRATIVE: CASE EVENT DATE: 20160904
